FAERS Safety Report 14244798 (Version 8)
Quarter: 2023Q2

REPORT INFORMATION
  Report Type: Report from Study
  Country: US (occurrence: US)
  Receive Date: 20171201
  Receipt Date: 20230607
  Transmission Date: 20230721
  Serious: Yes (Other)
  Sender: FDA-Public Use
  Company Number: US-JAZZ-2017-US-015809

PATIENT
  Age: 55 Year
  Sex: Female

DRUGS (23)
  1. XYREM [Suspect]
     Active Substance: SODIUM OXYBATE
     Indication: Narcolepsy
     Dosage: 2.25 G, BID
     Route: 048
     Dates: start: 201107, end: 201108
  2. XYREM [Suspect]
     Active Substance: SODIUM OXYBATE
     Indication: Cataplexy
     Dosage: 3 G, BID
     Route: 048
     Dates: start: 201108
  3. XYREM [Suspect]
     Active Substance: SODIUM OXYBATE
     Indication: Somnolence
  4. DIETARY SUPPLEMENT [Concomitant]
     Active Substance: DIETARY SUPPLEMENT
     Indication: Product used for unknown indication
     Dosage: UNK
     Dates: end: 201602
  5. ADDERALL [Concomitant]
     Active Substance: AMPHETAMINE ASPARTATE\AMPHETAMINE SULFATE\DEXTROAMPHETAMINE SACCHARATE\DEXTROAMPHETAMINE SULFATE
     Indication: Product used for unknown indication
     Dosage: UNK
     Dates: end: 201602
  6. CALTRATE D [CALCIUM CARBONATE;COLECALCIFEROL] [Concomitant]
     Indication: Product used for unknown indication
  7. GLICLAZIDE [Concomitant]
     Active Substance: GLICLAZIDE
     Indication: Product used for unknown indication
  8. FISH OIL [Concomitant]
     Active Substance: FISH OIL
     Indication: Product used for unknown indication
     Dosage: UNK
     Dates: end: 201602
  9. GLUCOSAMIN + CHONDROITIN [Concomitant]
     Indication: Product used for unknown indication
  10. HYDROCHLOROTHIAZIDE [Concomitant]
     Active Substance: HYDROCHLOROTHIAZIDE
     Indication: Product used for unknown indication
  11. KLONOPIN [Concomitant]
     Active Substance: CLONAZEPAM
     Indication: Product used for unknown indication
     Dosage: UNK
     Dates: end: 201602
  12. KRILL OIL [Concomitant]
     Active Substance: DIETARY SUPPLEMENT\KRILL OIL
     Indication: Product used for unknown indication
  13. NUVIGIL [Concomitant]
     Active Substance: ARMODAFINIL
     Indication: Product used for unknown indication
  14. VENTOLIN HFA [Concomitant]
     Active Substance: ALBUTEROL SULFATE
     Indication: Product used for unknown indication
  15. CETIRIZINE HCL [Concomitant]
     Active Substance: CETIRIZINE HYDROCHLORIDE
     Indication: Product used for unknown indication
     Dosage: UNK
     Dates: start: 20200722
  16. ARMODAFINIL [Concomitant]
     Active Substance: ARMODAFINIL
     Indication: Product used for unknown indication
     Dosage: UNK
  17. LIORESAL [Concomitant]
     Active Substance: BACLOFEN
     Indication: Product used for unknown indication
     Dosage: UNK
  18. PERIDEX [CHLORHEXIDINE GLUCONATE] [Concomitant]
     Indication: Product used for unknown indication
     Dosage: UNK
  19. IBUPROFEN [Concomitant]
     Active Substance: IBUPROFEN
     Indication: Product used for unknown indication
     Dosage: UNK
  20. VITAMINS [Concomitant]
     Active Substance: VITAMINS
     Indication: Product used for unknown indication
     Dosage: UNK
  21. OXYMETAZOLINE HYDROCHLORIDE [Concomitant]
     Active Substance: OXYMETAZOLINE HYDROCHLORIDE
     Indication: Product used for unknown indication
     Dosage: UNK
  22. CALCIUM [Concomitant]
     Active Substance: CALCIUM
     Indication: Product used for unknown indication
     Dosage: UNK
  23. CHONDROITIN SULFATE (BOVINE)\DIMETHYL SULFONE\GLUCOSAMINE SULFATE [Concomitant]
     Active Substance: CHONDROITIN SULFATE (BOVINE)\DIMETHYL SULFONE\GLUCOSAMINE SULFATE
     Indication: Product used for unknown indication
     Dosage: UNK

REACTIONS (8)
  - Uterine cyst [Unknown]
  - Back disorder [Unknown]
  - Obstructive sleep apnoea syndrome [Unknown]
  - Blood cholesterol increased [Unknown]
  - Blood pressure increased [Unknown]
  - Carpal tunnel syndrome [Recovered/Resolved]
  - Multiple allergies [Unknown]
  - Weight increased [Unknown]

NARRATIVE: CASE EVENT DATE: 20150601
